FAERS Safety Report 12218205 (Version 1)
Quarter: 2016Q1

REPORT INFORMATION
  Report Type: Spontaneous
  Country: TR (occurrence: TR)
  Receive Date: 20160329
  Receipt Date: 20160329
  Transmission Date: 20160526
  Serious: Yes (Death, Other)
  Sender: FDA-Public Use
  Company Number: TR-JNJFOC-20160322230

PATIENT
  Age: 44 Year
  Sex: Male

DRUGS (2)
  1. LEPONEX [Concomitant]
     Active Substance: CLOZAPINE
     Indication: UNEVALUABLE EVENT
     Route: 065
  2. XEPLION [Suspect]
     Active Substance: PALIPERIDONE PALMITATE
     Indication: SCHIZOPHRENIA
     Route: 030

REACTIONS (1)
  - Myocardial infarction [Fatal]
